FAERS Safety Report 5278140-7 (Version None)
Quarter: 2007Q1

REPORT INFORMATION
  Report Type: 
  Country: None (occurrence: None)
  Receive Date: 20061213
  Receipt Date: 20040903
  Transmission Date: 20070707
  Serious: No
  Sender: FDA-Public Use
  Company Number: 2004UW18575

PATIENT
  Sex: Female

DRUGS (3)
  1. SEROQUEL [Suspect]
     Dosage: 400 MG PO
     Route: 048
  2. SEROQUEL [Suspect]
     Dosage: 800 MG PO
     Route: 048
  3. SEROQUEL [Suspect]
     Dosage: 200 MG PO
     Route: 048

REACTIONS (1)
  - NEUROLEPTIC MALIGNANT SYNDROME [None]
